FAERS Safety Report 8097988-7 (Version None)
Quarter: 2012Q1

REPORT INFORMATION
  Report Type: 
  Country: None (occurrence: None)
  Receive Date: 20120128
  Receipt Date: 20110815
  Transmission Date: 20120608
  Serious: No
  Sender: FDA-Public Use
  Company Number: US-ABBOTT-11P-163-0846918-00

PATIENT
  Age: 53 Year
  Sex: Female

DRUGS (3)
  1. NAPROXEN (ALEVE) [Concomitant]
     Indication: PAIN
  2. HUMIRA [Suspect]
     Indication: RHEUMATOID ARTHRITIS
     Dates: start: 20110323
  3. METHOTREXATE [Concomitant]
     Indication: PRODUCT USED FOR UNKNOWN INDICATION

REACTIONS (7)
  - ARTHROPATHY [None]
  - CONDITION AGGRAVATED [None]
  - FAECES DISCOLOURED [None]
  - INJECTION SITE HAEMATOMA [None]
  - ARTHRALGIA [None]
  - JOINT SWELLING [None]
  - ABDOMINAL PAIN [None]
